FAERS Safety Report 16526833 (Version 2)
Quarter: 2019Q3

REPORT INFORMATION
  Report Type: Spontaneous
  Country: US (occurrence: US)
  Receive Date: 20190703
  Receipt Date: 20190831
  Transmission Date: 20191004
  Serious: Yes (Life-Threatening)
  Sender: FDA-Public Use
  Company Number: PHEH2019US027529

PATIENT
  Age: 2 Day
  Sex: Male
  Weight: 2.28 kg

DRUGS (4)
  1. AMPICILLIN FOR INJECTION, USP [Suspect]
     Active Substance: AMPICILLIN
     Indication: SEPSIS NEONATAL
     Dosage: 228 MG, UNK
     Route: 042
     Dates: start: 20190617
  2. AMPICILLIN FOR INJECTION, USP [Suspect]
     Active Substance: AMPICILLIN
     Dosage: 342 MG, UNK
     Route: 042
     Dates: end: 20190619
  3. GENTAMICIN. [Concomitant]
     Active Substance: GENTAMICIN
     Dosage: 10.2 MG, UNK
     Route: 065
     Dates: start: 20190619
  4. GENTAMICIN. [Concomitant]
     Active Substance: GENTAMICIN
     Indication: PRODUCT USED FOR UNKNOWN INDICATION
     Dosage: 10.2 MG, UNK
     Route: 065

REACTIONS (5)
  - Bradycardia neonatal [Recovered/Resolved with Sequelae]
  - Skin discolouration [Unknown]
  - Neonatal respiratory distress syndrome [Unknown]
  - Apnoea [Unknown]
  - Chest discomfort [Unknown]

NARRATIVE: CASE EVENT DATE: 20190619
